FAERS Safety Report 12288658 (Version 1)
Quarter: 2016Q2

REPORT INFORMATION
  Report Type: Spontaneous
  Country: CH (occurrence: CH)
  Receive Date: 20160421
  Receipt Date: 20160421
  Transmission Date: 20160815
  Serious: Yes (Life-Threatening, Hospitalization, Other)
  Sender: FDA-Public Use
  Company Number: CH-AMGEN-CHESP2016047624

PATIENT
  Age: 79 Year
  Sex: Male
  Weight: 85 kg

DRUGS (14)
  1. CALCIUM [Concomitant]
     Active Substance: CALCIUM
     Dosage: 6000 MG, QD
  2. CALCITRIOL. [Concomitant]
     Active Substance: CALCITRIOL
     Dosage: 08 MUG, QD
     Dates: start: 20160205
  3. ESIDREX [Suspect]
     Active Substance: HYDROCHLOROTHIAZIDE
     Indication: PRODUCT USED FOR UNKNOWN INDICATION
     Dosage: 3705 MG, UNK
     Route: 048
     Dates: start: 20160221
  4. VITAMIN D3 [Concomitant]
     Active Substance: CHOLECALCIFEROL
  5. CALCIMAGON D3 [Concomitant]
     Active Substance: CALCIUM\CHOLECALCIFEROL
     Dosage: UNK UNK, QD
     Dates: start: 20151231
  6. MAGNESIUM [Concomitant]
     Active Substance: MAGNESIUM
     Dosage: UNK UNK, QD
     Route: 048
     Dates: start: 20160207
  7. PHOSPHATE                          /01053101/ [Concomitant]
     Dosage: 4000 MG, QD
     Route: 048
     Dates: start: 20160202
  8. XGEVA [Suspect]
     Active Substance: DENOSUMAB
     Indication: METASTASES TO BONE
     Dosage: 120 MG, UNK
     Route: 065
     Dates: start: 20151230
  9. CALCIUM GLUCONATE. [Concomitant]
     Active Substance: CALCIUM GLUCONATE
     Dosage: 270 MG, QD
     Dates: start: 20160202, end: 20160218
  10. DIHYDROTACHYSTEROL [Concomitant]
     Active Substance: DIHYDROTACHYSTEROL
     Dosage: UNK
     Dates: start: 20160301
  11. SINTROM [Concomitant]
     Active Substance: ACENOCOUMAROL
     Indication: ATRIAL FIBRILLATION
     Route: 048
  12. OLEOVIT                            /00056001/ [Concomitant]
     Dosage: 2000 UNK, QD
     Route: 015
  13. PERINDOPRIL [Suspect]
     Active Substance: PERINDOPRIL
     Indication: PRODUCT USED FOR UNKNOWN INDICATION
     Dosage: 2 MG, UNK
     Route: 048
     Dates: start: 20160131
  14. CALCIUM PHOSPHATE [Concomitant]
     Active Substance: CALCIUM PHOSPHATE
     Dosage: 2.5 MMOL, UNK
     Route: 048

REACTIONS (12)
  - Hyponatraemia [Recovered/Resolved]
  - Hypokalaemia [Recovered/Resolved]
  - Electrocardiogram QT prolonged [Not Recovered/Not Resolved]
  - Syncope [Recovered/Resolved]
  - Hypomagnesaemia [Recovered/Resolved]
  - Hypocalcaemia [Not Recovered/Not Resolved]
  - Fall [Recovered/Resolved]
  - Head injury [Recovered/Resolved]
  - Hypophosphataemia [Recovered/Resolved]
  - Paraesthesia oral [Recovered/Resolved]
  - Hyperkalaemia [Recovered/Resolved]
  - Latent tetany [Unknown]

NARRATIVE: CASE EVENT DATE: 20160104
